FAERS Safety Report 5057185-6 (Version None)
Quarter: 2006Q3

REPORT INFORMATION
  Report Type: 
  Country: None (occurrence: None)
  Receive Date: 20060721
  Receipt Date: 20050601
  Transmission Date: 20061208
  Serious: No
  Sender: FDA-Public Use
  Company Number: US-GLAXOSMITHKLINE-A0560792A

PATIENT
  Sex: Female

DRUGS (8)
  1. AVANDIA [Suspect]
     Dosage: 4MG PER DAY
     Route: 048
  2. GLUCOVANCE [Concomitant]
  3. DILTIAZEM HCL [Concomitant]
  4. LANOXIN [Concomitant]
  5. PREDNISON [Concomitant]
  6. PROVENTIL [Concomitant]
  7. NEBULIZER [Concomitant]
  8. LASIX [Concomitant]

REACTIONS (3)
  - ERYTHEMA [None]
  - ILL-DEFINED DISORDER [None]
  - OEDEMA PERIPHERAL [None]
